FAERS Safety Report 22054263 (Version 5)
Quarter: 2024Q2

REPORT INFORMATION
  Report Type: Spontaneous
  Country: US (occurrence: US)
  Receive Date: 20230302
  Receipt Date: 20240503
  Transmission Date: 20240715
  Serious: Yes (Hospitalization, Other)
  Sender: FDA-Public Use
  Company Number: US-PFIZER INC-PV202200080834

PATIENT
  Age: 82 Year
  Sex: Female
  Weight: 61.678 kg

DRUGS (4)
  1. XELJANZ XR [Suspect]
     Active Substance: TOFACITINIB CITRATE
     Indication: Dermatomyositis
     Dosage: 11 MG, DAILY
     Route: 048
  2. XELJANZ XR [Suspect]
     Active Substance: TOFACITINIB CITRATE
     Indication: Rheumatoid arthritis
  3. PREDNISONE [Concomitant]
     Active Substance: PREDNISONE
     Dosage: UNK
     Dates: start: 202006
  4. VITAMIN B12 [Concomitant]
     Active Substance: CYANOCOBALAMIN
     Dosage: UNK
     Dates: start: 202309

REACTIONS (5)
  - Eye disorder [Not Recovered/Not Resolved]
  - Eye laser surgery [Recovered/Resolved]
  - Glaucoma [Unknown]
  - Open angle glaucoma [Unknown]
  - Hypertension [Unknown]

NARRATIVE: CASE EVENT DATE: 20240131
